FAERS Safety Report 23736240 (Version 2)
Quarter: 2024Q2

REPORT INFORMATION
  Report Type: Spontaneous
  Country: US (occurrence: US)
  Receive Date: 20240412
  Receipt Date: 20240417
  Transmission Date: 20240716
  Serious: Yes (Life-Threatening, Hospitalization)
  Sender: FDA-Public Use
  Company Number: US-MYLANLABS-2024M1031442

PATIENT
  Age: 30 Year
  Sex: Male

DRUGS (16)
  1. ALPRAZOLAM [Suspect]
     Active Substance: ALPRAZOLAM
     Indication: Product used for unknown indication
     Dosage: UNK
     Route: 065
  2. LIDOCAINE [Suspect]
     Active Substance: LIDOCAINE
     Indication: Product used for unknown indication
     Dosage: UNK
     Route: 065
  3. METHADONE [Suspect]
     Active Substance: METHADONE HYDROCHLORIDE
     Indication: Drug withdrawal maintenance therapy
     Dosage: UNK
     Route: 065
  4. METHADONE [Suspect]
     Active Substance: METHADONE HYDROCHLORIDE
     Indication: Endotracheal intubation
  5. METHADONE [Suspect]
     Active Substance: METHADONE HYDROCHLORIDE
     Indication: Overdose
  6. METHADONE [Suspect]
     Active Substance: METHADONE HYDROCHLORIDE
     Indication: Respiratory failure
  7. VECURONIUM [Suspect]
     Active Substance: VECURONIUM BROMIDE
     Indication: Drug withdrawal maintenance therapy
     Dosage: UNK
     Route: 065
  8. VECURONIUM [Suspect]
     Active Substance: VECURONIUM BROMIDE
     Indication: Endotracheal intubation
  9. VECURONIUM [Suspect]
     Active Substance: VECURONIUM BROMIDE
     Indication: Overdose
  10. VECURONIUM [Suspect]
     Active Substance: VECURONIUM BROMIDE
     Indication: Respiratory failure
  11. METRONIDAZOLE [Suspect]
     Active Substance: METRONIDAZOLE
     Indication: Product used for unknown indication
     Dosage: UNK
     Route: 065
  12. OXYCODONE [Suspect]
     Active Substance: OXYCODONE\OXYCODONE HYDROCHLORIDE
     Indication: Product used for unknown indication
     Dosage: UNK
     Route: 065
  13. ETOMIDATE [Suspect]
     Active Substance: ETOMIDATE
     Indication: Product used for unknown indication
     Dosage: UNK
     Route: 065
  14. DRONABINOL [Suspect]
     Active Substance: DRONABINOL
     Indication: Product used for unknown indication
     Dosage: UNK
     Route: 065
  15. NALOXONE [Suspect]
     Active Substance: NALOXONE
     Indication: Product used for unknown indication
     Dosage: UNK
     Route: 065
  16. OXYGEN [Concomitant]
     Active Substance: OXYGEN
     Indication: Product used for unknown indication
     Dosage: UNK
     Route: 065

REACTIONS (12)
  - Screaming [Unknown]
  - Blood pressure decreased [Unknown]
  - Unresponsive to stimuli [Unknown]
  - Apnoea [Unknown]
  - Agitation [Unknown]
  - Drug screen positive [Unknown]
  - Deafness neurosensory [Unknown]
  - Respiratory depression [Unknown]
  - Depressed level of consciousness [Unknown]
  - Heart rate decreased [Unknown]
  - Respiratory failure [Unknown]
  - Overdose [Unknown]
